FAERS Safety Report 23914084 (Version 1)
Quarter: 2024Q2

REPORT INFORMATION
  Report Type: Spontaneous
  Country: EG (occurrence: EG)
  Receive Date: 20240529
  Receipt Date: 20240529
  Transmission Date: 20240715
  Serious: Yes (Other)
  Sender: FDA-Public Use
  Company Number: EG-HIKMA PHARMACEUTICALS-EG-H14001-24-04389

PATIENT
  Age: 39 Year
  Sex: Male
  Weight: 95 kg

DRUGS (4)
  1. GEMCITABINE HYDROCHLORIDE [Suspect]
     Active Substance: GEMCITABINE HYDROCHLORIDE
     Dosage: 1890 MILLIGRAM, DAY 1, EVERY 3 WEEKS
     Route: 041
     Dates: start: 20240427
  2. GEMCITABINE HYDROCHLORIDE [Suspect]
     Active Substance: GEMCITABINE HYDROCHLORIDE
     Indication: Angiosarcoma
     Dosage: 1890 MILLIGRAM, DAY 1,8, EVERY 3 WEEKS
     Route: 041
  3. DOCETAXEL [Suspect]
     Active Substance: DOCETAXEL\DOCETAXEL ANHYDROUS
     Indication: Angiosarcoma
     Dosage: 210 MILLIGRAM, DAY 1, EVERY 3 WEEKS
     Route: 041
  4. DOCETAXEL [Suspect]
     Active Substance: DOCETAXEL\DOCETAXEL ANHYDROUS
     Dosage: 210 MILLIGRAM, DAY 1, EVERY 3 WEEKS
     Route: 041
     Dates: start: 20240427

REACTIONS (6)
  - Neutropenia [Unknown]
  - White blood cell count decreased [Unknown]
  - Palmar-plantar erythrodysaesthesia syndrome [Not Recovered/Not Resolved]
  - Skin exfoliation [Not Recovered/Not Resolved]
  - Neuropathy peripheral [Not Recovered/Not Resolved]
  - Hyperpyrexia [Recovered/Resolved]

NARRATIVE: CASE EVENT DATE: 20240428
